FAERS Safety Report 25263508 (Version 1)
Quarter: 2025Q2

REPORT INFORMATION
  Report Type: Spontaneous
  Country: US (occurrence: None)
  Receive Date: 20250501
  Receipt Date: 20250501
  Transmission Date: 20250717
  Serious: Yes (Other)
  Sender: FDA-CTU
  Company Number: None

PATIENT
  Age: 33 Year
  Sex: Male

DRUGS (1)
  1. HERBALS\MITRAGYNINE [Suspect]
     Active Substance: HERBALS\MITRAGYNINE
     Dates: end: 20250429

REACTIONS (7)
  - Irritability [None]
  - Paranoid personality disorder [None]
  - Withdrawal syndrome [None]
  - Chills [None]
  - Fatigue [None]
  - Feeling abnormal [None]
  - Restlessness [None]
